FAERS Safety Report 5328685-6 (Version None)
Quarter: 2007Q2

REPORT INFORMATION
  Report Type: 
  Country: None (occurrence: None)
  Receive Date: 20070518
  Receipt Date: 20070510
  Transmission Date: 20071010
  Serious: Yes (Hospitalization)
  Sender: FDA-Public Use
  Company Number: B0466987A

PATIENT
  Age: 60 Year
  Sex: Female
  Weight: 83 kg

DRUGS (11)
  1. AVANDAMET [Suspect]
     Dosage: 1UNIT TWICE PER DAY
     Route: 048
     Dates: start: 20050630, end: 20060915
  2. AMARYL [Suspect]
     Dosage: 4MG PER DAY
     Route: 048
     Dates: start: 20031004
  3. GLUCOPHAGE [Suspect]
     Dosage: 1000MG THREE TIMES PER DAY
     Route: 048
     Dates: start: 20031004, end: 20070402
  4. AVANDIA [Concomitant]
     Dosage: 4MG PER DAY
     Route: 048
     Dates: start: 20050221, end: 20050630
  5. DAFLON [Concomitant]
     Route: 065
  6. FOSINOPRIL SODIUM AND HYDROCHLOROTHIAZIDE [Concomitant]
     Route: 065
  7. DETENSIEL [Concomitant]
     Route: 065
  8. LEVOTHYROXINE SODIUM [Concomitant]
     Route: 065
  9. KARDEGIC [Concomitant]
     Route: 065
  10. VASTEN [Concomitant]
     Route: 065
  11. LAROXYL [Concomitant]
     Route: 065

REACTIONS (2)
  - ANAEMIA MACROCYTIC [None]
  - VITAMIN B12 DEFICIENCY [None]
